FAERS Safety Report 6267746-4 (Version None)
Quarter: 2009Q3

REPORT INFORMATION
  Report Type: 
  Country: None (occurrence: None)
  Receive Date: 20090714
  Receipt Date: 20090702
  Transmission Date: 20100115
  Serious: Yes (Death, Other)
  Sender: FDA-Public Use
  Company Number: US-TYCO HEALTHCARE/MALLINCKRODT-T200900381

PATIENT
  Sex: Female

DRUGS (24)
  1. OPTIMARK [Suspect]
     Indication: NUCLEAR MAGNETIC RESONANCE IMAGING BRAIN
     Dosage: 10 ML (CC), SINGLE
     Dates: start: 20060627, end: 20060627
  2. MAGNEVIST [Suspect]
     Indication: NUCLEAR MAGNETIC RESONANCE IMAGING BRAIN
     Dosage: 15 ML (CC), SINGLE
     Dates: start: 20051220, end: 20051220
  3. MAGNEVIST [Suspect]
     Indication: ANGIOGRAM
     Dosage: 40 ML (CC), UNK
     Dates: start: 20061201, end: 20061201
  4. MAGNEVIST [Suspect]
     Dosage: 15 ML (CC), SINGLE
     Dates: start: 20060619, end: 20060619
  5. TOPROL-XL [Concomitant]
  6. NORVASC [Concomitant]
  7. LISINOPRIL [Concomitant]
  8. CLONIDINE [Concomitant]
  9. NOVOLOG [Concomitant]
  10. LANTUS [Concomitant]
  11. CALCITROL                          /00508501/ [Concomitant]
  12. AMBIEN CR [Concomitant]
  13. PREVACID [Concomitant]
  14. RENAGEL                            /01459901/ [Concomitant]
  15. DARVOCET [Concomitant]
  16. DURAGESIC-100 [Concomitant]
  17. EPOGEN [Concomitant]
  18. OXYCODONE HCL AND ACETAMINOPHEN [Concomitant]
  19. PROTINEX [Concomitant]
  20. ALPRAZOLAM [Concomitant]
  21. METOCLOPRAMIDE [Concomitant]
  22. ZOFRAN [Concomitant]
  23. SENSIPAR [Concomitant]
  24. LASIX [Concomitant]

REACTIONS (4)
  - DEPRESSION [None]
  - DYSPHAGIA [None]
  - GANGRENE [None]
  - NEPHROGENIC SYSTEMIC FIBROSIS [None]
